FAERS Safety Report 22246628 (Version 2)
Quarter: 2023Q2

REPORT INFORMATION
  Report Type: Report from Study
  Country: FR (occurrence: None)
  Receive Date: 20230424
  Receipt Date: 20230501
  Transmission Date: 20230722
  Serious: Yes (Death)
  Sender: FDA-Public Use
  Company Number: 2023A065570

PATIENT
  Age: 859 Month
  Sex: Male
  Weight: 95 kg

DRUGS (1)
  1. IMFINZI [Suspect]
     Active Substance: DURVALUMAB
     Indication: Metastases to biliary tract
     Route: 042
     Dates: start: 20230316, end: 20230316

REACTIONS (2)
  - Off label use [Unknown]
  - Thrombocytosis [Fatal]

NARRATIVE: CASE EVENT DATE: 20230301
